FAERS Safety Report 10514792 (Version 6)
Quarter: 2015Q2

REPORT INFORMATION
  Report Type: Spontaneous
  Country: US (occurrence: US)
  Receive Date: 20141013
  Receipt Date: 20150512
  Transmission Date: 20150821
  Serious: No
  Sender: FDA-Public Use
  Company Number: US-PFIZER INC-2014275557

PATIENT
  Age: 43 Year
  Sex: Female

DRUGS (10)
  1. PERCOCET [Concomitant]
     Active Substance: ACETAMINOPHEN\OXYCODONE HYDROCHLORIDE
     Dosage: UNK
     Dates: start: 2001
  2. NORTRIPTYLINE [Concomitant]
     Active Substance: NORTRIPTYLINE
     Dosage: UNK
  3. PREDNISONE. [Concomitant]
     Active Substance: PREDNISONE
     Dosage: UNK
     Dates: start: 2001
  4. ARAMIS [Concomitant]
     Dosage: UNK
  5. METHOTREXATE [Concomitant]
     Active Substance: METHOTREXATE
     Dosage: UNK
     Dates: start: 2001
  6. AZULFIDINE [Suspect]
     Active Substance: SULFASALAZINE
     Indication: RHEUMATOID ARTHRITIS
     Dosage: UNK, WEEKLY
  7. ARMOUR THYROID [Concomitant]
     Active Substance: THYROID, PORCINE\THYROID, UNSPECIFIED
     Dosage: UNK
     Dates: start: 2012
  8. ANGELIQ [Concomitant]
     Active Substance: DROSPIRENONE\ESTRADIOL
     Dosage: UNK
  9. PLAQUENIL [Suspect]
     Active Substance: HYDROXYCHLOROQUINE SULFATE
     Indication: RHEUMATOID ARTHRITIS
     Dosage: UNK, WEEKLY
  10. FOLIC ACID. [Suspect]
     Active Substance: FOLIC ACID
     Indication: RHEUMATOID ARTHRITIS
     Dosage: UNK, DAILY
     Dates: start: 2001, end: 2001

REACTIONS (1)
  - Drug hypersensitivity [Recovered/Resolved]
